FAERS Safety Report 8388037-1 (Version None)
Quarter: 2012Q2

REPORT INFORMATION
  Report Type: 
  Country: None (occurrence: None)
  Receive Date: 20120525
  Receipt Date: 20120517
  Transmission Date: 20120825
  Serious: Yes (Other)
  Sender: FDA-Public Use
  Company Number: US-ELI_LILLY_AND_COMPANY-US201205006717

PATIENT
  Sex: Male

DRUGS (2)
  1. EFFIENT [Suspect]
     Dosage: 10 MG, UNK
  2. EFFIENT [Suspect]
     Indication: STENT PLACEMENT
     Dosage: UNK, SINGLE LOADING DOSE

REACTIONS (2)
  - THROMBOSIS IN DEVICE [None]
  - DRUG DOSE OMISSION [None]
